FAERS Safety Report 15422273 (Version 1)
Quarter: 2018Q3

REPORT INFORMATION
  Report Type: Spontaneous
  Country: US (occurrence: US)
  Receive Date: 20180924
  Receipt Date: 20180924
  Transmission Date: 20181010
  Serious: Yes (Other)
  Sender: FDA-Public Use
  Company Number: PHEH2018US040026

PATIENT
  Age: 81 Year
  Sex: Female

DRUGS (1)
  1. EVEROLIMUS. [Suspect]
     Active Substance: EVEROLIMUS
     Indication: ENDOMETRIAL CANCER RECURRENT
     Dosage: 10 MG, QD
     Route: 048
     Dates: start: 201808

REACTIONS (2)
  - Product use in unapproved indication [Unknown]
  - Haemoglobin decreased [Not Recovered/Not Resolved]
